FAERS Safety Report 9941810 (Version 1)
Quarter: 2014Q1

REPORT INFORMATION
  Report Type: Report from Study
  Country: US (occurrence: US)
  Receive Date: 20140303
  Receipt Date: 20140303
  Transmission Date: 20141002
  Serious: Yes (Other)
  Sender: FDA-Public Use
  Company Number: US-ABBVIE-13P-163-1040062-00

PATIENT
  Sex: Male
  Weight: 117.13 kg

DRUGS (2)
  1. HUMIRA [Suspect]
     Indication: RHEUMATOID ARTHRITIS
     Dates: start: 2004
  2. METHOTREXATE [Concomitant]
     Indication: RHEUMATOID ARTHRITIS

REACTIONS (7)
  - Cataract [Recovered/Resolved]
  - Cataract [Not Recovered/Not Resolved]
  - Arthralgia [Not Recovered/Not Resolved]
  - Musculoskeletal pain [Not Recovered/Not Resolved]
  - Joint swelling [Not Recovered/Not Resolved]
  - Arthralgia [Not Recovered/Not Resolved]
  - Arthritis [Not Recovered/Not Resolved]
